FAERS Safety Report 7308270-7 (Version None)
Quarter: 2011Q1

REPORT INFORMATION
  Report Type: 
  Country: None (occurrence: None)
  Receive Date: 20110223
  Receipt Date: 20110214
  Transmission Date: 20110831
  Serious: Yes (Hospitalization)
  Sender: FDA-Public Use
  Company Number: A0891023A

PATIENT
  Age: 70 Year
  Sex: Male

DRUGS (1)
  1. AVANDIA [Suspect]
     Route: 048
     Dates: start: 20020311, end: 20100101

REACTIONS (3)
  - CEREBROVASCULAR ACCIDENT [None]
  - AMNESIA [None]
  - HYPOAESTHESIA [None]
